FAERS Safety Report 12924504 (Version 3)
Quarter: 2016Q4

REPORT INFORMATION
  Report Type: Spontaneous
  Country: IT (occurrence: IT)
  Receive Date: 20161109
  Receipt Date: 20161205
  Transmission Date: 20170207
  Serious: Yes (Other)
  Sender: FDA-Public Use
  Company Number: IT-ROCHE-1851586

PATIENT
  Age: 46 Year
  Sex: Male

DRUGS (4)
  1. RIVOTRIL [Suspect]
     Active Substance: CLONAZEPAM
     Indication: PRODUCT USED FOR UNKNOWN INDICATION
     Route: 048
     Dates: start: 20150802, end: 20150802
  2. COCAINE [Concomitant]
     Active Substance: COCAINE
  3. TAVOR (LORAZEPAM) [Suspect]
     Active Substance: LORAZEPAM
     Indication: PRODUCT USED FOR UNKNOWN INDICATION
     Dosage: 2 MG/ML ORAL DROPS, SOLUTION^ 1 BOTTLE
     Route: 048
     Dates: start: 20150802, end: 20150802
  4. HEROIN [Concomitant]
     Active Substance: DIACETYLMORPHINE

REACTIONS (7)
  - Abdominal pain upper [Recovered/Resolved]
  - Drug abuse [Unknown]
  - Dyspnoea [Recovered/Resolved]
  - Nausea [Recovered/Resolved]
  - Headache [Recovered/Resolved]
  - Substance abuse [Recovered/Resolved]
  - Myalgia [Recovered/Resolved]

NARRATIVE: CASE EVENT DATE: 20150802
